FAERS Safety Report 9995166 (Version 1)
Quarter: 2014Q1

REPORT INFORMATION
  Report Type: Spontaneous
  Country: US (occurrence: None)
  Receive Date: 20140225
  Receipt Date: 20140225
  Transmission Date: 20141002
  Serious: Yes (Other)
  Sender: FDA-Public Use
  Company Number: 2013-246

PATIENT
  Age: 42 Year
  Sex: Female
  Weight: 99.3 kg

DRUGS (14)
  1. PRIALT [Suspect]
     Indication: PAIN
     Dosage: UNK MCG, ONCE/HOUR, INTRATHECAL
     Route: 037
     Dates: start: 201302
  2. PRIALT [Suspect]
     Indication: POST LAMINECTOMY SYNDROME
     Dosage: UNK MCG, ONCE/HOUR, INTRATHECAL
     Route: 037
     Dates: start: 201302
  3. PRIALT [Suspect]
     Indication: BACK PAIN
     Dosage: UNK MCG, ONCE/HOUR, INTRATHECAL
     Route: 037
     Dates: start: 201302
  4. ACIPHEX(RABEPRAZOLE SODIUM) [Concomitant]
  5. MIRENA(LEVONORGESTEROL) [Concomitant]
  6. MULTIVITAMIN(VITAMIN NOSE) [Concomitant]
  7. CYMBALTA [Concomitant]
  8. AMITRIPTYLINE HCL(AMITRIPTYLINE HYDROCHLORIDE) [Concomitant]
  9. HUMIRA(ADALIMUMAB) [Concomitant]
  10. ATENOLOL(ATENOLOL) [Concomitant]
  11. HYDROCHLOROTHIAZIDE(HYDROCHLOROTHIAZIDE) [Concomitant]
  12. PERCOCET(OXYCODONE HYDROCHLORIDE, PARACETAMOL) [Concomitant]
  13. ZOFRAN(ODANSETRON HYDROCHLORIDE) [Concomitant]
  14. SULFASALAZINE(SULFASALAZINE) [Concomitant]

REACTIONS (1)
  - Infection [None]
